FAERS Safety Report 24930433 (Version 1)
Quarter: 2025Q1

REPORT INFORMATION
  Report Type: Spontaneous
  Country: NO (occurrence: NO)
  Receive Date: 20250205
  Receipt Date: 20250205
  Transmission Date: 20250409
  Serious: Yes (Hospitalization)
  Sender: HILL DERMACEUTICALS, INC.
  Company Number: NO-Hill Dermaceuticals, Inc.-2169503

PATIENT
  Age: 85 Year
  Sex: Female

DRUGS (7)
  1. TOLAK [Suspect]
     Active Substance: FLUOROURACIL
     Indication: Actinic keratosis
     Dates: start: 20240628, end: 20240714
  2. PANTOPRAZOLE SODIUM [Concomitant]
     Active Substance: PANTOPRAZOLE SODIUM
  3. NUCALA [Concomitant]
     Active Substance: MEPOLIZUMAB
  4. BECLOMETHASONE DIPROPIONATE\FORMOTEROL FUMARATE\GLYCOPYRROLATE [Concomitant]
     Active Substance: BECLOMETHASONE DIPROPIONATE\FORMOTEROL FUMARATE\GLYCOPYRROLATE
  5. BISOPROLOL FUMARATE [Concomitant]
     Active Substance: BISOPROLOL FUMARATE
  6. FUROSEMIDE [Concomitant]
     Active Substance: FUROSEMIDE
  7. EDOXABAN TOSYLATE [Concomitant]
     Active Substance: EDOXABAN TOSYLATE

REACTIONS (1)
  - Varicella encephalitis [Recovering/Resolving]

NARRATIVE: CASE EVENT DATE: 20240710
